FAERS Safety Report 6037866-8 (Version None)
Quarter: 2009Q1

REPORT INFORMATION
  Report Type: 
  Country: None (occurrence: None)
  Receive Date: 20090113
  Receipt Date: 20090113
  Transmission Date: 20090719
  Serious: Yes (Hospitalization)
  Sender: FDA-Public Use
  Company Number: None

PATIENT
  Sex: Male
  Weight: 82 kg

DRUGS (2)
  1. CISPLATIN [Suspect]
     Dosage: 100MG/M2 IV Q21DAYS
     Route: 042
     Dates: start: 20081222
  2. CETUXIMAB [Suspect]
     Dosage: 150MG/M2 IV QWKS
     Route: 042
     Dates: start: 20081006

REACTIONS (3)
  - DERMATITIS [None]
  - MUCOSAL INFLAMMATION [None]
  - NEUTROPENIA [None]
